FAERS Safety Report 20056950 (Version 8)
Quarter: 2022Q2

REPORT INFORMATION
  Report Type: Spontaneous
  Country: CZ (occurrence: CZ)
  Receive Date: 20211111
  Receipt Date: 20220509
  Transmission Date: 20220721
  Serious: Yes (Death, Life-Threatening, Hospitalization, Other)
  Sender: FDA-Public Use
  Company Number: CZ-CELGENE-CZE-20210802090

PATIENT
  Age: 71 Year
  Sex: Male
  Weight: 98 kg

DRUGS (18)
  1. AZACITIDINE [Suspect]
     Active Substance: AZACITIDINE
     Indication: Myelodysplastic syndrome
     Dosage: 75 MILLIGRAM/SQ. METER,FREQUENCY TEXT: ON DAYS 1 - 5 AND DAYS 8 - 975 MILLIGRAM/SQ. METER DURATION
     Route: 058
     Dates: start: 20210322, end: 20210720
  2. VENETOCLAX [Suspect]
     Active Substance: VENETOCLAX
     Indication: Myelodysplastic syndrome
     Dosage: 28D CYCLE
     Route: 048
     Dates: start: 20210322, end: 20210622
  3. VENETOCLAX [Suspect]
     Active Substance: VENETOCLAX
     Dosage: 14 28D CYCLE
     Route: 048
     Dates: start: 20210322, end: 20210725
  4. AMOXICILLIN\CLAVULANATE POTASSIUM [Concomitant]
     Active Substance: AMOXICILLIN\CLAVULANATE POTASSIUM
     Indication: Infection prophylaxis
     Dosage: 4 GRAM, QD
     Route: 048
     Dates: start: 20210326, end: 20210809
  5. AMOXICILLIN\CLAVULANATE POTASSIUM [Concomitant]
     Active Substance: AMOXICILLIN\CLAVULANATE POTASSIUM
     Dosage: 2 GRAM, BID,4 GRAM
     Route: 048
     Dates: start: 20210326, end: 20210809
  6. BISOPROLOL FUMARATE [Concomitant]
     Active Substance: BISOPROLOL FUMARATE
     Indication: Arrhythmia
     Dosage: 5 MILLIGRAM, QD
     Route: 048
     Dates: start: 201101, end: 20210803
  7. PROPAFENONE [Concomitant]
     Active Substance: PROPAFENONE
     Indication: Arrhythmia
     Dosage: 450 MILLIGRAM, QD
     Route: 048
     Dates: start: 201101, end: 20210805
  8. CONTROLOC [Concomitant]
     Active Substance: PANTOPRAZOLE SODIUM
     Indication: Gastric ulcer
     Dosage: UNK
  9. CONTROLOC [Concomitant]
     Active Substance: PANTOPRAZOLE SODIUM
     Indication: Prophylaxis
     Dosage: 40 MILLIGRAM, QD
     Route: 048
     Dates: start: 198003
  10. INDAPAMIDE\PERINDOPRIL ARGININE [Concomitant]
     Active Substance: INDAPAMIDE\PERINDOPRIL ARGININE
     Indication: Hypertension
     Dosage: 5 MILLIGRAM, QD
     Route: 048
     Dates: start: 201101, end: 20210803
  11. CLOPIDOGREL [Concomitant]
     Active Substance: CLOPIDOGREL BISULFATE
     Indication: Antiplatelet therapy
     Dosage: 75 MILLIGRAM, QD
     Route: 048
     Dates: start: 201101, end: 20210803
  12. CLOPIDOGREL [Concomitant]
     Active Substance: CLOPIDOGREL BISULFATE
     Indication: Ischaemic stroke
     Dosage: UNK
  13. ATORVASTATIN CALCIUM [Concomitant]
     Active Substance: ATORVASTATIN CALCIUM
     Indication: Hypercholesterolaemia
     Dosage: UNK
     Dates: start: 201909
  14. ATORVASTATIN CALCIUM [Concomitant]
     Active Substance: ATORVASTATIN CALCIUM
     Indication: Prophylaxis
     Dosage: 40 MILLIGRAM, QD
     Route: 048
     Dates: start: 201909, end: 20210803
  15. ATORVASTATIN CALCIUM [Concomitant]
     Active Substance: ATORVASTATIN CALCIUM
     Dosage: UNK
  16. LACTULOSE [Concomitant]
     Active Substance: LACTULOSE
     Indication: Constipation prophylaxis
     Dosage: 4002 MILLIGRAM, QD
     Route: 048
     Dates: start: 20210322, end: 20210803
  17. LACTULOSE [Concomitant]
     Active Substance: LACTULOSE
     Dosage: 2001 MILLIGRAM, BID,~4002 MILLIGRAM
     Route: 048
     Dates: start: 20210322, end: 20210803
  18. GRANISETRON HYDROCHLORIDE [Concomitant]
     Active Substance: GRANISETRON HYDROCHLORIDE
     Indication: Prophylaxis of nausea and vomiting
     Dosage: 2 MILLIGRAM,FREQUENCY TEXT: AS REQUIRED
     Route: 048
     Dates: start: 20210322, end: 20210803

REACTIONS (4)
  - Cerebral haemorrhage [Fatal]
  - Haemorrhage intracranial [Fatal]
  - Hypoxia [Recovered/Resolved]
  - Pneumonia [Not Recovered/Not Resolved]

NARRATIVE: CASE EVENT DATE: 20210803
